FAERS Safety Report 14165189 (Version 2)
Quarter: 2018Q1

REPORT INFORMATION
  Report Type: Spontaneous
  Country: US (occurrence: US)
  Receive Date: 20171107
  Receipt Date: 20180209
  Transmission Date: 20180508
  Serious: No
  Sender: FDA-Public Use
  Company Number: US-LUNDBECK-DKLU2039299

PATIENT
  Age: 42 Year
  Sex: Female

DRUGS (3)
  1. NORTHERA [Suspect]
     Active Substance: DROXIDOPA
     Route: 048
  2. NORTHERA [Suspect]
     Active Substance: DROXIDOPA
     Indication: PRODUCT USED FOR UNKNOWN INDICATION
     Dosage: TITRATION SCHEDULE B (TITRATING)
     Route: 048
     Dates: start: 20171024
  3. NORTHERA [Suspect]
     Active Substance: DROXIDOPA
     Route: 048

REACTIONS (6)
  - Headache [Recovered/Resolved]
  - Nausea [Unknown]
  - Pain [Unknown]
  - Drug ineffective [Unknown]
  - Abdominal pain [Recovered/Resolved]
  - Insomnia [Unknown]

NARRATIVE: CASE EVENT DATE: 20171024
